FAERS Safety Report 7326926-7 (Version None)
Quarter: 2011Q1

REPORT INFORMATION
  Report Type: 
  Country: None (occurrence: None)
  Receive Date: 20110302
  Receipt Date: 20090924
  Transmission Date: 20110831
  Serious: Yes (Hospitalization, Other)
  Sender: FDA-Public Use
  Company Number: US-PFIZER INC-2009274960

PATIENT
  Sex: Male

DRUGS (5)
  1. BACTRIM DS [Concomitant]
     Dosage: UNK
     Route: 048
     Dates: start: 20070901
  2. DILANTIN-125 [Suspect]
     Indication: CONVULSION
     Dosage: UNK
     Dates: start: 20070819, end: 20070924
  3. CIPROFLOXACIN [Concomitant]
     Dosage: 500 MG, UNK
     Route: 048
     Dates: start: 20070901
  4. VICODIN [Concomitant]
     Indication: PAIN
     Dosage: UNK
     Route: 048
     Dates: start: 20070901
  5. AUGMENTIN '125' [Concomitant]
     Dosage: 875 MG, 2X/DAY
     Route: 048

REACTIONS (1)
  - STEVENS-JOHNSON SYNDROME [None]
